FAERS Safety Report 5612270-2 (Version None)
Quarter: 2008Q1

REPORT INFORMATION
  Report Type: 
  Country: None (occurrence: None)
  Receive Date: 20080128
  Receipt Date: 20080116
  Transmission Date: 20080703
  Serious: Yes (Life-Threatening)
  Sender: FDA-Public Use
  Company Number: 2008AL000403

PATIENT
  Age: 66 Year
  Sex: Male

DRUGS (7)
  1. TRAMADOL HCL [Suspect]
     Dosage: 50 MG
     Dates: start: 20071211, end: 20071212
  2. MARCUMAR [Concomitant]
  3. CRESTOR [Concomitant]
  4. FUROSEMIDE [Concomitant]
  5. SPIRONOLACTONE [Concomitant]
  6. GLIMEPIRIDE [Concomitant]
  7. NEWACE [Concomitant]

REACTIONS (2)
  - INTERNATIONAL NORMALISED RATIO INCREASED [None]
  - POTENTIATING DRUG INTERACTION [None]
